FAERS Safety Report 7733786-9 (Version None)
Quarter: 2011Q3

REPORT INFORMATION
  Report Type: 
  Country: None (occurrence: None)
  Receive Date: 20110907
  Receipt Date: 20110830
  Transmission Date: 20111222
  Serious: Yes (Hospitalization)
  Sender: FDA-Public Use
  Company Number: PHFR2011GB05074

PATIENT
  Sex: Male

DRUGS (2)
  1. CLOZAPINE [Suspect]
     Indication: SCHIZOPHRENIA
     Dosage: 500 MG, QD
     Route: 048
     Dates: start: 20031101, end: 20110826
  2. CLOZAPINE [Suspect]
     Dosage: 500 MG, QD
     Route: 048
     Dates: start: 20110828

REACTIONS (1)
  - GASTROINTESTINAL CARCINOMA [None]
